FAERS Safety Report 9868127 (Version 3)
Quarter: 2014Q1

REPORT INFORMATION
  Report Type: Spontaneous
  Country: JP (occurrence: JP)
  Receive Date: 20140204
  Receipt Date: 20140219
  Transmission Date: 20141002
  Serious: Yes (Hospitalization)
  Sender: FDA-Public Use
  Company Number: JP-AMGEN-JPNSP2013086424

PATIENT
  Age: 98 Year
  Sex: Female

DRUGS (13)
  1. PRALIA [Suspect]
     Indication: OSTEOPOROSIS
     Dosage: 60 MG, UNK
     Route: 058
     Dates: start: 20130903
  2. CELECOXIB [Concomitant]
     Dosage: UNKNOWN     EVERY
     Route: 065
  3. MUCOSTA [Concomitant]
     Dosage: UNK
     Route: 065
  4. MUCOSTA [Concomitant]
     Dosage: UNKNOWN     EVERY
  5. EDIROL [Concomitant]
     Dosage: UNK
     Route: 065
  6. PARIET [Concomitant]
     Dosage: UNK
     Route: 065
  7. PARIET [Concomitant]
     Dosage: UNKNOWN     EVERY
  8. SOLIFENACIN [Concomitant]
     Dosage: UNKNOWN EVERY
     Route: 065
  9. PANPYOTIN [Concomitant]
     Dosage: UNK
     Route: 065
  10. PANPYOTIN [Concomitant]
     Dosage: UNKNOWN     EVERY
  11. FUROSEMIDE [Concomitant]
     Dosage: UNK
     Route: 065
  12. FUROSEMIDE [Concomitant]
     Dosage: UNKNOWN     EVERY
  13. MAGNESIUM OXIDE [Concomitant]

REACTIONS (3)
  - Liver disorder [Recovered/Resolved]
  - Cholecystitis acute [Recovered/Resolved]
  - Sepsis [Recovered/Resolved]
